FAERS Safety Report 19912220 (Version 1)
Quarter: 2021Q4

REPORT INFORMATION
  Report Type: Spontaneous
  Country: US (occurrence: US)
  Receive Date: 20211001
  Receipt Date: 20211001
  Transmission Date: 20220304
  Serious: No
  Sender: FDA-Public Use
  Company Number: None

PATIENT
  Age: 42 Year
  Sex: Male

DRUGS (1)
  1. MYOBLOC [Suspect]
     Active Substance: RIMABOTULINUMTOXINB
     Route: 058
     Dates: start: 20200722

REACTIONS (2)
  - Transcription medication error [None]
  - Product dispensing error [None]

NARRATIVE: CASE EVENT DATE: 20211001
